FAERS Safety Report 18573417 (Version 4)
Quarter: 2021Q1

REPORT INFORMATION
  Report Type: Other
  Country: CH (occurrence: CH)
  Receive Date: 20201203
  Receipt Date: 20210106
  Transmission Date: 20210419
  Serious: Yes (Life-Threatening, Hospitalization, Disabling, Other)
  Sender: FDA-Public Use
  Company Number: CH-ASTELLAS-2020US042222

PATIENT
  Age: 34 Year
  Sex: Female

DRUGS (53)
  1. PROGRAF [Suspect]
     Active Substance: TACROLIMUS
     Route: 048
     Dates: start: 20201102, end: 20201105
  2. NEXIUM [Suspect]
     Active Substance: ESOMEPRAZOLE MAGNESIUM
     Indication: PRODUCT USED FOR UNKNOWN INDICATION
     Route: 042
     Dates: start: 20201006, end: 20201020
  3. PERFALGAN [Suspect]
     Active Substance: ACETAMINOPHEN
     Dosage: 1000 MG, AS NEEDED (4 TIMES DAILY ON HAND)
     Route: 048
     Dates: start: 20201006, end: 20201027
  4. FENTANYL. [Concomitant]
     Active Substance: FENTANYL
     Indication: PRODUCT USED FOR UNKNOWN INDICATION
     Dosage: UNK UNK, UNKNOWN FREQ.
     Route: 065
     Dates: start: 20201010, end: 20201028
  5. PROGRAF [Suspect]
     Active Substance: TACROLIMUS
     Indication: PRODUCT USED FOR UNKNOWN INDICATION
     Dosage: UNK, UNKNOWN FREQ.
     Route: 065
  6. PROGRAF [Suspect]
     Active Substance: TACROLIMUS
     Dosage: UNK, UNKNOWN FREQ. (INCREASED DOSE)
     Route: 065
  7. BACTRIM [Suspect]
     Active Substance: SULFAMETHOXAZOLE\TRIMETHOPRIM
     Indication: PRODUCT USED FOR UNKNOWN INDICATION
     Route: 042
     Dates: start: 20201006, end: 20201019
  8. CEFEPIME [Suspect]
     Active Substance: CEFEPIME HYDROCHLORIDE
     Dosage: 2 G, EVERY 8 HOUR
     Route: 065
     Dates: start: 20201106, end: 20201108
  9. MYCOSTATIN [Suspect]
     Active Substance: NYSTATIN
     Indication: PRODUCT USED FOR UNKNOWN INDICATION
     Route: 002
     Dates: start: 20200929
  10. LEVOFLOXACINE [LEVOFLOXACIN] [Suspect]
     Active Substance: LEVOFLOXACIN
     Route: 065
     Dates: start: 20201201, end: 20201201
  11. CLARITHROMYCIN. [Suspect]
     Active Substance: CLARITHROMYCIN
     Indication: PRODUCT USED FOR UNKNOWN INDICATION
     Route: 065
     Dates: start: 20201202, end: 20201204
  12. URSOFALK [Concomitant]
     Active Substance: URSODIOL
     Indication: PRODUCT USED FOR UNKNOWN INDICATION
     Dosage: UNK UNK, UNKNOWN FREQ.
     Route: 065
     Dates: start: 20201007
  13. PREGABALIN. [Concomitant]
     Active Substance: PREGABALIN
     Indication: PRODUCT USED FOR UNKNOWN INDICATION
     Dosage: UNK UNK, UNKNOWN FREQ.
     Route: 065
     Dates: start: 20201104
  14. SOLU?MEDROL [Concomitant]
     Active Substance: METHYLPREDNISOLONE SODIUM SUCCINATE
     Indication: PRODUCT USED FOR UNKNOWN INDICATION
     Route: 065
     Dates: start: 20201020
  15. DISTRANEURIN [CLOMETHIAZOLE] [Suspect]
     Active Substance: CLOMETHIAZOLE
     Indication: PRODUCT USED FOR UNKNOWN INDICATION
     Route: 048
     Dates: start: 20201102
  16. PERFALGAN [Suspect]
     Active Substance: ACETAMINOPHEN
     Dosage: 500 MG, AS NEEDED THRICE DAILY (MAX)
     Route: 041
     Dates: start: 20201027
  17. ONDANSETRON [Suspect]
     Active Substance: ONDANSETRON
     Indication: PRODUCT USED FOR UNKNOWN INDICATION
     Route: 041
     Dates: start: 20201008, end: 20201019
  18. EMEND (FOSAPREPITANT DIMEGLUMINE) [Suspect]
     Active Substance: FOSAPREPITANT DIMEGLUMINE
     Indication: PRODUCT USED FOR UNKNOWN INDICATION
     Dosage: 125MG/72H, CYCLIC
     Route: 048
     Dates: start: 20200928, end: 20201019
  19. INDERAL [Suspect]
     Active Substance: PROPRANOLOL HYDROCHLORIDE
     Indication: PRODUCT USED FOR UNKNOWN INDICATION
     Route: 048
     Dates: start: 202011, end: 20201204
  20. GANCICLOVIR [GANCICLOVIR SODIUM] [Suspect]
     Active Substance: GANCICLOVIR SODIUM
     Indication: PRODUCT USED FOR UNKNOWN INDICATION
     Dosage: 300 MG, (5.164 MG/KG) EVERY 24 HOUR
     Route: 042
     Dates: start: 202011, end: 20201204
  21. VALGANCICLOVIR. [Concomitant]
     Active Substance: VALGANCICLOVIR
     Indication: PRODUCT USED FOR UNKNOWN INDICATION
     Route: 065
     Dates: start: 20201030
  22. PROGRAF [Suspect]
     Active Substance: TACROLIMUS
     Route: 042
     Dates: start: 20201005, end: 20201015
  23. QUETIAPINE. [Suspect]
     Active Substance: QUETIAPINE
     Indication: AGITATION
     Dosage: 12.5 MG, THRICE DAILY (MAX) ON HAND
     Route: 048
     Dates: start: 202011
  24. BACTRIM [Suspect]
     Active Substance: SULFAMETHOXAZOLE\TRIMETHOPRIM
     Dosage: 160 MG, THRICE WEEKLY (TRIMETHOPRIM)
     Route: 048
     Dates: start: 20201019, end: 20201027
  25. LASIX [Suspect]
     Active Substance: FUROSEMIDE
     Route: 065
     Dates: start: 20201012, end: 20201016
  26. WELLVONE [Suspect]
     Active Substance: ATOVAQUONE
     Indication: PRODUCT USED FOR UNKNOWN INDICATION
     Dosage: 1500 MG, EVERY 24 HOUR
     Route: 065
     Dates: start: 202011
  27. ECALTA [Concomitant]
     Active Substance: ANIDULAFUNGIN
     Indication: PRODUCT USED FOR UNKNOWN INDICATION
     Dosage: UNK UNK, UNKNOWN FREQ.
     Route: 065
     Dates: start: 20201027
  28. PROGRAF [Suspect]
     Active Substance: TACROLIMUS
     Indication: PRODUCT USED FOR UNKNOWN INDICATION
     Route: 048
     Dates: start: 20201029, end: 20201102
  29. TIENAM [Suspect]
     Active Substance: CILASTATIN SODIUM\IMIPENEM
     Dosage: UNK UNK, UNKNOWN FREQ.
     Route: 065
     Dates: start: 20201108
  30. LEVOFLOXACINE [LEVOFLOXACIN] [Suspect]
     Active Substance: LEVOFLOXACIN
     Route: 065
     Dates: start: 20201205
  31. ACICLOVIR [Concomitant]
     Active Substance: ACYCLOVIR
     Indication: PRODUCT USED FOR UNKNOWN INDICATION
     Dosage: UNK UNK, UNKNOWN FREQ.
     Route: 065
     Dates: start: 20201001, end: 20201019
  32. PASPERTIN [METOCLOPRAMIDE HYDROCHLORIDE] [Concomitant]
     Active Substance: METOCLOPRAMIDE HYDROCHLORIDE
     Indication: PRODUCT USED FOR UNKNOWN INDICATION
     Dosage: UNK UNK, UNKNOWN FREQ.
     Route: 065
     Dates: start: 20201008
  33. PROGRAF [Suspect]
     Active Substance: TACROLIMUS
     Route: 042
     Dates: start: 20201026, end: 20201029
  34. VANCOMYCINE [VANCOMYCIN] [Suspect]
     Active Substance: VANCOMYCIN
     Indication: PRODUCT USED FOR UNKNOWN INDICATION
     Route: 065
     Dates: start: 20201009, end: 20201011
  35. EMEND (FOSAPREPITANT DIMEGLUMINE) [Suspect]
     Active Substance: FOSAPREPITANT DIMEGLUMINE
     Dosage: 80MG/72H, CYCLIC
     Route: 048
     Dates: start: 20200929, end: 20201019
  36. LEVOFLOXACINE [LEVOFLOXACIN] [Suspect]
     Active Substance: LEVOFLOXACIN
     Indication: PRODUCT USED FOR UNKNOWN INDICATION
     Route: 065
     Dates: start: 20201121, end: 20201121
  37. AZACTAM [Suspect]
     Active Substance: AZTREONAM
     Indication: PRODUCT USED FOR UNKNOWN INDICATION
     Dosage: 2 G, AS NEEDED EVERY 6 HOUR (ON HAND)
     Route: 042
     Dates: start: 202011
  38. TIORFAN [Concomitant]
     Active Substance: RACECADOTRIL
     Indication: PRODUCT USED FOR UNKNOWN INDICATION
     Dosage: UNK UNK, UNKNOWN FREQ.
     Route: 065
     Dates: start: 20201010, end: 20201015
  39. NEOMYCIN;POLYMYXIN B [Concomitant]
     Indication: PRODUCT USED FOR UNKNOWN INDICATION
     Dosage: UNK UNK, UNKNOWN FREQ.
     Route: 065
     Dates: start: 20201007, end: 20201019
  40. PROGRAF [Suspect]
     Active Substance: TACROLIMUS
     Route: 048
     Dates: start: 20201105
  41. CEFEPIME [Suspect]
     Active Substance: CEFEPIME HYDROCHLORIDE
     Indication: PRODUCT USED FOR UNKNOWN INDICATION
     Dosage: 2 G, EVERY 8 HOUR
     Route: 065
     Dates: start: 20201008, end: 20201017
  42. VANCOMYCINE [VANCOMYCIN] [Suspect]
     Active Substance: VANCOMYCIN
     Route: 065
     Dates: start: 20201011, end: 20201017
  43. OSPEN [PHENOXYMETHYLPENICILLIN BENZATHINE] [Suspect]
     Active Substance: PENICILLIN V BENZATHINE
     Indication: PRODUCT USED FOR UNKNOWN INDICATION
     Dosage: 1 MIOIU, ONCE DAILY
     Route: 065
     Dates: start: 20201027, end: 20201105
  44. NEXIUM MUPS [ESOMEPRAZOLE MAGNESIUM] [Suspect]
     Active Substance: ESOMEPRAZOLE MAGNESIUM
     Indication: PRODUCT USED FOR UNKNOWN INDICATION
     Route: 048
     Dates: start: 20201021
  45. HEPARINE [HEPARIN SODIUM] [Concomitant]
     Active Substance: HEPARIN SODIUM
     Indication: PRODUCT USED FOR UNKNOWN INDICATION
     Dosage: UNK UNK, UNKNOWN FREQ.
     Route: 065
     Dates: start: 20201009
  46. NOVORAPID [Concomitant]
     Active Substance: INSULIN ASPART
     Indication: PRODUCT USED FOR UNKNOWN INDICATION
     Dosage: 2 IU, PER HOUR
     Route: 042
     Dates: start: 20201009
  47. PROGRAF [Suspect]
     Active Substance: TACROLIMUS
     Route: 042
     Dates: start: 20201015, end: 20201026
  48. LASIX [Suspect]
     Active Substance: FUROSEMIDE
     Indication: PRODUCT USED FOR UNKNOWN INDICATION
     Dosage: 40 MG, UNKNOWN FREQ. O.U.
     Route: 065
     Dates: start: 20201011, end: 20201011
  49. TIENAM [Suspect]
     Active Substance: CILASTATIN SODIUM\IMIPENEM
     Indication: PRODUCT USED FOR UNKNOWN INDICATION
     Dosage: 500 MG, EVERY 6 HOUR
     Route: 065
     Dates: start: 20201017, end: 20201021
  50. TIENAM [Suspect]
     Active Substance: CILASTATIN SODIUM\IMIPENEM
     Dosage: UNK UNK, UNKNOWN FREQ.
     Route: 065
     Dates: start: 20201023, end: 20201026
  51. FLUCONAZOLE. [Suspect]
     Active Substance: FLUCONAZOLE
     Indication: PRODUCT USED FOR UNKNOWN INDICATION
     Route: 042
     Dates: start: 20201002, end: 20201020
  52. PERFALGAN [Suspect]
     Active Substance: ACETAMINOPHEN
     Indication: PRODUCT USED FOR UNKNOWN INDICATION
     Route: 048
     Dates: start: 20200924, end: 20201006
  53. BUPRENORPHINE. [Concomitant]
     Active Substance: BUPRENORPHINE
     Indication: PRODUCT USED FOR UNKNOWN INDICATION
     Dosage: UNK UNK, UNKNOWN FREQ.
     Route: 065

REACTIONS (14)
  - Toxic epidermal necrolysis [Recovered/Resolved]
  - Herpes virus infection [Unknown]
  - Graft versus host disease [Unknown]
  - Drug eruption [Unknown]
  - Graft versus host disease [Unknown]
  - Rash [Unknown]
  - Drug eruption [Unknown]
  - Rash papular [Recovered/Resolved]
  - Toxic epidermal necrolysis [Recovering/Resolving]
  - Stevens-Johnson syndrome [Unknown]
  - Dermatitis infected [Unknown]
  - Dermatitis bullous [Recovered/Resolved]
  - Inappropriate schedule of product administration [Unknown]
  - Liver injury [Unknown]

NARRATIVE: CASE EVENT DATE: 20201007
